FAERS Safety Report 8537411-9 (Version None)
Quarter: 2012Q3

REPORT INFORMATION
  Report Type: 
  Country: None (occurrence: None)
  Receive Date: 20120725
  Receipt Date: 20120713
  Transmission Date: 20120928
  Serious: Yes (Hospitalization)
  Sender: FDA-Public Use
  Company Number: GB-TEVA-348238ISR

PATIENT
  Sex: Female

DRUGS (16)
  1. PAROXETINE HYDROCHLORIDE [Suspect]
     Indication: DEPRESSION
     Route: 048
     Dates: start: 20111101
  2. TETRABENAZINE [Suspect]
     Indication: PRODUCT USED FOR UNKNOWN INDICATION
     Dosage: 4.5 MILLIGRAM;
     Route: 065
  3. LORAZEPAM [Suspect]
     Indication: PRODUCT USED FOR UNKNOWN INDICATION
     Route: 065
  4. FENOFIBRATE [Concomitant]
     Dosage: 160MG PER DAY
  5. PROPRANOLOL [Suspect]
     Indication: PRODUCT USED FOR UNKNOWN INDICATION
     Route: 065
  6. LORAZEPAM [Suspect]
     Dosage: 1.5 MILLIGRAM;
     Dates: start: 20110101
  7. RAMIPRIL [Concomitant]
     Dosage: 2.5MG PER DAY
  8. ATORVASTATIN [Concomitant]
     Dosage: 40MG AT NIGHT
  9. METOCLOPRAMIDE [Suspect]
     Indication: PRODUCT USED FOR UNKNOWN INDICATION
     Route: 065
  10. MIRTAZAPINE [Suspect]
     Indication: PRODUCT USED FOR UNKNOWN INDICATION
     Dosage: 30 MILLIGRAM;
     Route: 065
  11. BECONASE [Concomitant]
  12. PAROXETINE HYDROCHLORIDE [Suspect]
     Dosage: 20 MILLIGRAM;
     Route: 048
     Dates: start: 20110101
  13. OMEPRAZOLE [Concomitant]
     Dosage: 30MG PER DAY
  14. MIRTAZAPINE [Suspect]
     Dosage: 15 MILLIGRAM;
     Route: 065
  15. ACRIVASTINE [Concomitant]
     Dosage: 8MG THREE TIMES PER DAY
  16. BENDROFLUMETHIAZIDE [Concomitant]
     Dosage: 2.5MG PER DAY

REACTIONS (5)
  - AKATHISIA [None]
  - FALL [None]
  - HALLUCINATION [None]
  - EATING DISORDER [None]
  - MUSCLE CONTRACTIONS INVOLUNTARY [None]
